FAERS Safety Report 13561717 (Version 6)
Quarter: 2020Q2

REPORT INFORMATION
  Report Type: Report from Study
  Country: US (occurrence: US)
  Receive Date: 20170518
  Receipt Date: 20200520
  Transmission Date: 20200713
  Serious: Yes (Other)
  Sender: FDA-Public Use
  Company Number: PHHY2015US070844

PATIENT
  Age: 60 Year
  Sex: Female

DRUGS (6)
  1. LIPITOR [Concomitant]
     Active Substance: ATORVASTATIN CALCIUM
     Indication: BLOOD CHOLESTEROL INCREASED
     Dosage: UNK
     Route: 065
     Dates: start: 20150908, end: 20160927
  2. HCTZ [Concomitant]
     Active Substance: HYDROCHLOROTHIAZIDE
     Indication: HYPERTENSION
     Dosage: UNK
     Route: 065
     Dates: start: 20150908
  3. CRESTOR [Concomitant]
     Active Substance: ROSUVASTATIN CALCIUM
     Indication: BLOOD CHOLESTEROL INCREASED
     Dosage: UNK
     Route: 065
     Dates: start: 20160927, end: 20170913
  4. GILENYA [Suspect]
     Active Substance: FINGOLIMOD HYDROCHLORIDE
     Indication: MULTIPLE SCLEROSIS
     Dosage: UNK, QD
     Route: 048
  5. FLONASE [Concomitant]
     Active Substance: FLUTICASONE PROPIONATE
     Indication: HYPERSENSITIVITY
     Dosage: UNK
     Route: 065
     Dates: start: 20150303, end: 20170913
  6. CARBAMAZEPINE. [Concomitant]
     Active Substance: CARBAMAZEPINE
     Indication: NEURALGIA
     Dosage: UNK
     Route: 065
     Dates: start: 20170515

REACTIONS (34)
  - Meniere^s disease [Unknown]
  - Blood pressure increased [Unknown]
  - Diarrhoea [Unknown]
  - Anxiety [Unknown]
  - Paraesthesia [Unknown]
  - Bladder spasm [Unknown]
  - Food poisoning [Unknown]
  - Headache [Recovered/Resolved]
  - Muscular weakness [Unknown]
  - Cranial nerve disorder [Unknown]
  - Vertigo [Unknown]
  - Oral herpes [Unknown]
  - Constipation [Unknown]
  - Tremor [Unknown]
  - Ear pain [Recovered/Resolved]
  - Oropharyngeal pain [Unknown]
  - Tooth abscess [Unknown]
  - Depression [Unknown]
  - Muscle spasms [Recovered/Resolved]
  - Muscular weakness [Unknown]
  - Confusional state [Unknown]
  - Alopecia [Unknown]
  - Uhthoff^s phenomenon [Unknown]
  - Cataract [Unknown]
  - Fatigue [Unknown]
  - Muscle spasms [Recovered/Resolved]
  - Facial pain [Unknown]
  - Gastrointestinal infection [Unknown]
  - Dyspnoea [Unknown]
  - Cognitive disorder [Unknown]
  - Abdominal pain [Unknown]
  - Incontinence [Recovered/Resolved]
  - Muscle spasticity [Unknown]
  - Dizziness postural [Unknown]

NARRATIVE: CASE EVENT DATE: 20141217
